FAERS Safety Report 9558837 (Version 2)
Quarter: 2013Q3

REPORT INFORMATION
  Report Type: Report from Study
  Country: KR (occurrence: KR)
  Receive Date: 20130926
  Receipt Date: 20130926
  Transmission Date: 20140515
  Serious: No
  Sender: FDA-Public Use
  Company Number: PHHY2012KR115228

PATIENT
  Sex: Male

DRUGS (4)
  1. AMN107 [Suspect]
     Dosage: 800 MG/DAY
     Route: 048
     Dates: start: 20120802
  2. NAPROXEN [Concomitant]
     Indication: ARTHRALGIA
     Dosage: 550 MG PER DAY
     Route: 048
     Dates: start: 20120726, end: 20120821
  3. PSEUDOEPHEDRINE [Concomitant]
     Indication: NASOPHARYNGITIS
     Dosage: 3 DF PER DAY
     Route: 048
     Dates: start: 20121008, end: 20121017
  4. COUGH SYRUP [Concomitant]
     Indication: NASOPHARYNGITIS
     Dosage: 60 CC
     Route: 048
     Dates: start: 20121008, end: 20121017

REACTIONS (2)
  - Thrombocytopenia [Not Recovered/Not Resolved]
  - Blood cholesterol increased [Unknown]
